FAERS Safety Report 21485724 (Version 4)
Quarter: 2023Q2

REPORT INFORMATION
  Report Type: Report from Study
  Country: DE (occurrence: DE)
  Receive Date: 20221020
  Receipt Date: 20230626
  Transmission Date: 20230722
  Serious: Yes (Other)
  Sender: FDA-Public Use
  Company Number: DE-NOVARTISPH-NVSC2020DE162372

PATIENT
  Sex: Female
  Weight: 72 kg

DRUGS (3)
  1. KISQALI [Suspect]
     Active Substance: RIBOCICLIB
     Indication: Hormone receptor positive HER2 negative breast cancer
     Dosage: 600 MG,  21 DAYS INTAKE, 7 DAYS PAUSE
     Route: 048
     Dates: start: 20200425, end: 20200525
  2. KISQALI [Suspect]
     Active Substance: RIBOCICLIB
     Dosage: 600 MG,  21 DAYS INTAKE, 7 DAYS PAUSE
     Route: 048
     Dates: start: 20200604, end: 20200624
  3. LETROZOLE [Suspect]
     Active Substance: LETROZOLE
     Indication: Hormone receptor positive HER2 negative breast cancer
     Dosage: 2.5 MG, QD
     Route: 048
     Dates: start: 20200425, end: 20200624

REACTIONS (3)
  - Sjogren^s syndrome [Not Recovered/Not Resolved]
  - Fatigue [Not Recovered/Not Resolved]
  - Glomerular filtration rate decreased [Unknown]

NARRATIVE: CASE EVENT DATE: 20200525
